FAERS Safety Report 7398759-7 (Version None)
Quarter: 2011Q2

REPORT INFORMATION
  Report Type: 
  Country: None (occurrence: None)
  Receive Date: 20110401
  Receipt Date: 20110401
  Transmission Date: 20111010
  Serious: Yes (Life-Threatening)
  Sender: FDA-Public Use
  Company Number: None

PATIENT
  Age: 47 Year
  Sex: Female
  Weight: 67.1324 kg

DRUGS (2)
  1. WELLBUTRIN [Suspect]
     Indication: DEPRESSION
     Dosage: 150 MG 2 TIMES A DAY PO
     Route: 048
     Dates: start: 20110101, end: 20110304
  2. WELLBUTRIN [Suspect]
     Indication: SMOKING CESSATION THERAPY
     Dosage: 150 MG 2 TIMES A DAY PO
     Route: 048
     Dates: start: 20110101, end: 20110304

REACTIONS (1)
  - HALLUCINATION [None]
